FAERS Safety Report 26218929 (Version 1)
Quarter: 2025Q4

REPORT INFORMATION
  Report Type: Spontaneous
  Country: None (occurrence: EU)
  Receive Date: 20251231
  Receipt Date: 20251231
  Transmission Date: 20260117
  Serious: Yes (Hospitalization, Other)
  Sender: ALNYLAM PHARMACEUTICALS
  Company Number: EU-ALNYLAM PHARMACEUTICALS, INC.-ALN-2025-008226

PATIENT

DRUGS (3)
  1. GIVLAARI [Suspect]
     Active Substance: GIVOSIRAN SODIUM
     Indication: Porphyria acute
     Dosage: 2.5 MILLIGRAM/KILOGRAM, 28 DAYS
  2. HEMIN [Concomitant]
     Active Substance: HEMIN
     Indication: Porphyria acute
     Dosage: 4 MILLIGRAM/KILOGRAM, QD
  3. HYDROXYUREA [Concomitant]
     Active Substance: HYDROXYUREA
     Indication: Porphyria acute
     Dosage: 10-20 MILLIGRAM/KILOGRAM, QD
     Route: 061

REACTIONS (6)
  - Pain [Unknown]
  - Blood pressure abnormal [Unknown]
  - Porphyria acute [Unknown]
  - Somatic symptom disorder [Unknown]
  - Motor dysfunction [Unknown]
  - Dysphonia [Unknown]
